FAERS Safety Report 12446967 (Version 3)
Quarter: 2016Q2

REPORT INFORMATION
  Report Type: Spontaneous
  Country: BR (occurrence: BR)
  Receive Date: 20160608
  Receipt Date: 20160628
  Transmission Date: 20160815
  Serious: Yes (Other)
  Sender: FDA-Public Use
  Company Number: BR-SA-2016SA107931

PATIENT
  Age: 48 Year
  Sex: Male
  Weight: 68 kg

DRUGS (14)
  1. ATENOLOL. [Concomitant]
     Active Substance: ATENOLOL
     Route: 065
     Dates: start: 20150430, end: 20150608
  2. BISOPROLOL [Concomitant]
     Active Substance: BISOPROLOL
     Dates: start: 20150609
  3. PARACETAMOL [Concomitant]
     Active Substance: ACETAMINOPHEN
     Dates: start: 20150805, end: 20150810
  4. PREDNISONE. [Concomitant]
     Active Substance: PREDNISONE
     Dates: start: 20150805, end: 20150810
  5. DEXAMETHASONE. [Concomitant]
     Active Substance: DEXAMETHASONE
     Dates: start: 20150805, end: 20150805
  6. ATORVASTATIN [Concomitant]
     Active Substance: ATORVASTATIN
     Route: 065
     Dates: start: 20150430
  7. AMOXICILLIN TRIHYDRATE/CLAVULANATE POTASSIUM [Concomitant]
     Dates: start: 20150805, end: 20150819
  8. CODEINE [Concomitant]
     Active Substance: CODEINE
     Dates: start: 20150805, end: 20150805
  9. CLOPIDOGREL BISULFATE. [Suspect]
     Active Substance: CLOPIDOGREL BISULFATE
     Route: 065
     Dates: start: 20150430
  10. ENALAPRIL [Concomitant]
     Active Substance: ENALAPRIL
     Dates: start: 20150430
  11. ACETYLSALICYLIC ACID [Suspect]
     Active Substance: ASPIRIN
     Route: 065
     Dates: start: 20150430
  12. DIPYRONE [Concomitant]
     Active Substance: DIPYRONE
     Dates: start: 20150805, end: 20150810
  13. RANITIDINE. [Concomitant]
     Active Substance: RANITIDINE
     Dates: start: 20150609, end: 20151002
  14. CLONAZEPAM. [Concomitant]
     Active Substance: CLONAZEPAM
     Dates: start: 20150609

REACTIONS (2)
  - Gastritis erosive [Recovered/Resolved]
  - Erosive oesophagitis [Recovered/Resolved]

NARRATIVE: CASE EVENT DATE: 20150812
